FAERS Safety Report 4541252-7 (Version None)
Quarter: 2004Q4

REPORT INFORMATION
  Report Type: 
  Country: None (occurrence: None)
  Receive Date: 20041228
  Receipt Date: 20041216
  Transmission Date: 20050328
  Serious: Yes (Other)
  Sender: FDA-Public Use
  Company Number: 200416077BCC

PATIENT
  Age: 78 Year
  Sex: Male
  Weight: 77.1115 kg

DRUGS (4)
  1. PHILLIP'S MILK OF MAGNESIA TABLETS (MILK OF MAGNESIA) [Suspect]
     Indication: CONSTIPATION
     Dosage: 2488 MG, OW, ORAL
     Route: 048
     Dates: start: 20040601
  2. NORVASC [Concomitant]
  3. PLETAL [Concomitant]
  4. LIPITOR [Concomitant]

REACTIONS (4)
  - CONDITION AGGRAVATED [None]
  - CONSTIPATION [None]
  - DRUG DEPENDENCE [None]
  - LAXATIVE ABUSE [None]
